FAERS Safety Report 4706936-6 (Version None)
Quarter: 2005Q3

REPORT INFORMATION
  Report Type: 
  Country: None (occurrence: None)
  Receive Date: 20050706
  Receipt Date: 20040311
  Transmission Date: 20060218
  Serious: Yes (Other)
  Sender: FDA-Public Use
  Company Number: PHBS2004NO03471

PATIENT
  Sex: Female

DRUGS (1)
  1. LAMISIL [Suspect]
     Route: 065
     Dates: start: 20040108, end: 20040221

REACTIONS (2)
  - AGEUSIA [None]
  - ANOSMIA [None]
